FAERS Safety Report 6118192-5 (Version None)
Quarter: 2009Q1

REPORT INFORMATION
  Report Type: 
  Country: None (occurrence: None)
  Receive Date: 20090314
  Receipt Date: 20090209
  Transmission Date: 20090719
  Serious: No
  Sender: FDA-Public Use
  Company Number: US-ABBOTT-09P-163-0502821-00

PATIENT
  Sex: Female

DRUGS (2)
  1. HUMIRA [Suspect]
     Indication: RHEUMATOID ARTHRITIS
     Dates: start: 20070828, end: 20081225
  2. REMICADE [Concomitant]
     Indication: DRUG USE FOR UNKNOWN INDICATION

REACTIONS (5)
  - DRY SKIN [None]
  - HYPERHIDROSIS [None]
  - HYPOAESTHESIA [None]
  - RESPIRATORY TRACT INFECTION [None]
  - SINUSITIS [None]
